FAERS Safety Report 5888401-6 (Version None)
Quarter: 2008Q3

REPORT INFORMATION
  Report Type: 
  Country: None (occurrence: None)
  Receive Date: 20080918
  Receipt Date: 20080908
  Transmission Date: 20090109
  Serious: Yes (Other)
  Sender: FDA-Public Use
  Company Number: FR-PFIZER INC-2008075548

PATIENT
  Age: 57 Year
  Sex: Male

DRUGS (4)
  1. TAHOR [Suspect]
     Indication: STENT PLACEMENT
  2. ASPIRIN [Concomitant]
  3. ATACAND [Concomitant]
  4. CELECTOL [Concomitant]

REACTIONS (6)
  - BLOOD CREATINE PHOSPHOKINASE INCREASED [None]
  - CYTOLYTIC HEPATITIS [None]
  - MUSCLE SPASMS [None]
  - MYALGIA [None]
  - RHABDOMYOLYSIS [None]
  - TETANY [None]
